FAERS Safety Report 13134866 (Version 12)
Quarter: 2017Q4

REPORT INFORMATION
  Report Type: Spontaneous
  Country: FR (occurrence: FR)
  Receive Date: 20170120
  Receipt Date: 20171222
  Transmission Date: 20180320
  Serious: Yes (Hospitalization, Disabling, Other)
  Sender: FDA-Public Use
  Company Number: FR-SA-2017SA009435

PATIENT
  Age: 55 Year
  Sex: Female
  Weight: 73 kg

DRUGS (13)
  1. METRONIDAZOLE. [Concomitant]
     Active Substance: METRONIDAZOLE
     Route: 065
     Dates: start: 20160129, end: 20160205
  2. CEFTRIAXONE. [Concomitant]
     Active Substance: CEFTRIAXONE
     Route: 065
     Dates: start: 20160129, end: 20160205
  3. MENVEO [Suspect]
     Active Substance: NEISSERIA MENINGITIDIS GROUP A CAPSULAR OLIGOSACCHARIDE DIPHTHERIA CRM197 PROTEIN CONJUGATE ANTIGEN\NEISSERIA MENINGITIDIS GROUP C CAPSULAR OLIGOSACCHARIDE DIPHTHERIA CRM197 PROTEIN CONJUGATE ANTIGEN\NEISSERIA MENINGITIDIS GROUP W-135 CAPSULAR OLIGOSACCHARIDE DIPHTHERIA CRM197 PROTEIN CONJUGATE ANTI
     Indication: PROPHYLAXIS
     Route: 030
     Dates: start: 20160115, end: 20160115
  4. PARACETAMOL [Concomitant]
     Active Substance: ACETAMINOPHEN
     Route: 065
  5. LEVOTHYROX [Concomitant]
     Active Substance: LEVOTHYROXINE
     Dosage: STRENGTH: 25 ?G
     Route: 065
  6. TOPALGIC (TRAMADOL HYDROCHLORIDE) [Concomitant]
     Active Substance: TRAMADOL HYDROCHLORIDE
     Route: 042
  7. RIFADINE [Suspect]
     Active Substance: RIFAMPIN
     Indication: ANTIBIOTIC PROPHYLAXIS
     Route: 048
     Dates: start: 20160114, end: 20160115
  8. RIFADINE [Suspect]
     Active Substance: RIFAMPIN
     Indication: ANTIBIOTIC PROPHYLAXIS
     Route: 048
     Dates: start: 20160124, end: 20160125
  9. RIFADINE [Suspect]
     Active Substance: RIFAMPIN
     Indication: ANTIBIOTIC PROPHYLAXIS
     Route: 048
     Dates: start: 20160112, end: 20160113
  10. LEVOTHYROX [Concomitant]
     Active Substance: LEVOTHYROXINE
     Dosage: STRENGTH:100?G
     Route: 065
  11. PERFALGAN [Concomitant]
     Active Substance: ACETAMINOPHEN
     Route: 065
     Dates: start: 20160206, end: 20160212
  12. EUPANTOL [Concomitant]
     Active Substance: PANTOPRAZOLE SODIUM
     Route: 065
  13. PERFALGAN [Concomitant]
     Active Substance: ACETAMINOPHEN
     Route: 065
     Dates: end: 20160205

REACTIONS (28)
  - Clostridium difficile colitis [Unknown]
  - Hyperhidrosis [Unknown]
  - Mobility decreased [Not Recovered/Not Resolved]
  - Flatulence [Not Recovered/Not Resolved]
  - Intellectual disability [Not Recovered/Not Resolved]
  - Asthenia [Not Recovered/Not Resolved]
  - Motor dysfunction [Not Recovered/Not Resolved]
  - Large intestine perforation [Recovered/Resolved with Sequelae]
  - Clostridium difficile colitis [Not Recovered/Not Resolved]
  - Depression [Not Recovered/Not Resolved]
  - Visual impairment [Not Recovered/Not Resolved]
  - Respiratory disorder [Unknown]
  - Abnormal faeces [Not Recovered/Not Resolved]
  - Nervous system disorder [Not Recovered/Not Resolved]
  - Tachycardia [Unknown]
  - Colitis [Recovered/Resolved with Sequelae]
  - Fatigue [Not Recovered/Not Resolved]
  - Abdominal pain [Recovered/Resolved]
  - Blood pressure immeasurable [Unknown]
  - Retinal detachment [Recovered/Resolved with Sequelae]
  - Vomiting [Recovered/Resolved]
  - Back pain [Not Recovered/Not Resolved]
  - Total lung capacity decreased [Not Recovered/Not Resolved]
  - Insomnia [Not Recovered/Not Resolved]
  - Peritonitis [Recovered/Resolved with Sequelae]
  - Haemodynamic instability [Unknown]
  - Musculoskeletal disorder [Not Recovered/Not Resolved]
  - Abdominal pain upper [Unknown]

NARRATIVE: CASE EVENT DATE: 2016
